FAERS Safety Report 11240128 (Version 1)
Quarter: 2015Q3

REPORT INFORMATION
  Report Type: Spontaneous
  Country: US (occurrence: None)
  Receive Date: 20150701
  Receipt Date: 20150701
  Transmission Date: 20151125
  Serious: Yes (Hospitalization)
  Sender: FDA-Public Use
  Company Number: None

PATIENT
  Age: 82 Year
  Sex: Male
  Weight: 78.8 kg

DRUGS (1)
  1. WARFARIN [Suspect]
     Active Substance: WARFARIN
     Indication: ATRIAL FIBRILLATION
     Route: 048
     Dates: start: 20120601, end: 20141008

REACTIONS (6)
  - Dizziness [None]
  - Dyspnoea [None]
  - Ulcer [None]
  - Head injury [None]
  - Gastric haemorrhage [None]
  - Loss of consciousness [None]

NARRATIVE: CASE EVENT DATE: 20140830
